FAERS Safety Report 9333856 (Version 1)
Quarter: 2013Q2

REPORT INFORMATION
  Report Type: Spontaneous
  Country: US (occurrence: US)
  Receive Date: 20130606
  Receipt Date: 20130606
  Transmission Date: 20140414
  Serious: No
  Sender: FDA-Public Use
  Company Number: US-AMGEN-USASP2013005710

PATIENT
  Age: 78 Year
  Sex: Female
  Weight: 68.93 kg

DRUGS (10)
  1. PROLIA [Suspect]
     Indication: OSTEOPOROSIS POSTMENOPAUSAL
     Dosage: 60 MG, Q6MO
     Route: 058
     Dates: start: 20100920
  2. LEVOTHYROXINE [Concomitant]
     Dosage: 75 MUG, QD
  3. LISINOPRIL/HCTZ [Concomitant]
     Dosage: 10 MG, QD
  4. SIMVASTATIN [Concomitant]
     Dosage: 20 MG, QD
  5. VITAMIN D3 [Concomitant]
     Dosage: UNK UNK, QD
  6. PRESERVISION [Concomitant]
     Dosage: UNK UNK, QD
  7. FIBER CHOICE PLUS CALCIUM [Concomitant]
     Dosage: UNK
  8. ONE-A-DAY                          /00156401/ [Concomitant]
     Dosage: UNK UNK, QD
  9. VITAMIN C                          /00008001/ [Concomitant]
     Dosage: UNK UNK, QD
  10. CALCIUM WITH VITAMIN D             /00944201/ [Concomitant]

REACTIONS (4)
  - Amnesia [Unknown]
  - Wrist fracture [Recovered/Resolved]
  - Stress [Unknown]
  - Fall [Unknown]
